FAERS Safety Report 5786040-9 (Version None)
Quarter: 2008Q2

REPORT INFORMATION
  Report Type: 
  Country: None (occurrence: None)
  Receive Date: 20080624
  Receipt Date: 20070606
  Transmission Date: 20081010
  Serious: No
  Sender: FDA-Public Use
  Company Number: US-ASTRAZENECA-2007UW13672

PATIENT
  Age: 84 Year
  Sex: Male

DRUGS (4)
  1. PULMICORT-100 [Suspect]
     Indication: EMPHYSEMA
     Route: 055
  2. BLOOD THINNER [Concomitant]
  3. ANTI-HYPERTENSIVE [Concomitant]
  4. THYROID REPLACEMENT [Concomitant]

REACTIONS (2)
  - DRUG INEFFECTIVE [None]
  - DYSPNOEA [None]
